FAERS Safety Report 9503588 (Version 2)
Quarter: 2013Q3

REPORT INFORMATION
  Report Type: Spontaneous
  Country: IN (occurrence: IN)
  Receive Date: 20130906
  Receipt Date: 20130923
  Transmission Date: 20140515
  Serious: Yes (Life-Threatening, Other)
  Sender: FDA-Public Use
  Company Number: IN-PFIZER INC-2013256108

PATIENT
  Age: 63 Year
  Sex: Male

DRUGS (8)
  1. RAMIPRIL [Suspect]
     Dosage: 5 MG, UNK
     Route: 065
  2. METOPROLOL TARTRATE [Suspect]
     Dosage: 25 MG, UNK
     Route: 065
  3. DICLOFENAC SODIUM [Suspect]
     Indication: CHEST PAIN
     Dosage: MORE THAN A COUPLE OF DICLOFENAC TABLETS
     Route: 065
  4. INSULIN HUMAN [Suspect]
     Indication: HYPERKALAEMIA
     Dosage: 10 UNIT, UNK
     Route: 042
  5. CALCIUM GLUCONATE [Suspect]
     Indication: HYPERKALAEMIA
     Dosage: UNK
     Route: 042
  6. ASPIRIN [Concomitant]
     Dosage: 75 MG, UNK
  7. ATORVASTATIN [Concomitant]
     Dosage: 10 MG, UNK
  8. DEXTROSE [Concomitant]
     Dosage: UNK

REACTIONS (1)
  - Hyperkalaemia [Recovered/Resolved]
